FAERS Safety Report 16847146 (Version 1)
Quarter: 2019Q3

REPORT INFORMATION
  Report Type: Other
  Country: ES (occurrence: ES)
  Receive Date: 20190924
  Receipt Date: 20190924
  Transmission Date: 20191005
  Serious: Yes (Other)
  Sender: FDA-Public Use
  Company Number: ES-GE HEALTHCARE LIFE SCIENCES-2019CSU004800

PATIENT

DRUGS (9)
  1. BUPROPION. [Concomitant]
     Active Substance: BUPROPION
     Dosage: 150 MG, UNK
     Route: 048
  2. PARACETAMOL [Concomitant]
     Active Substance: ACETAMINOPHEN
     Dosage: 1 G, UNK
     Route: 048
  3. LORMETAZEPAM [Concomitant]
     Active Substance: LORMETAZEPAM
     Dosage: 2 MG, UNK
     Route: 048
  4. LEXATIN [Concomitant]
     Dosage: 1.5 MG (ALSO REPORTED AS 1.5ML), UNKNOWN FREQUENCY
     Route: 048
  5. ZUANTRIP [Concomitant]
     Active Substance: TAMSULOSIN HYDROCHLORIDE
     Dosage: 0.4 MG (^EFG MODIFIED RELEASE^), 30 CAPSULE, UNKNOWN FREQUENCY
     Route: 048
  6. CLONAZEPAM. [Concomitant]
     Active Substance: CLONAZEPAM
     Dosage: 4 GTT, UNK
     Route: 048
  7. STILNOX [Concomitant]
     Active Substance: ZOLPIDEM TARTRATE
     Dosage: 10 MG, (30 TABLETS), UNKNOWN FREQUENCY
     Route: 048
  8. VISIPAQUE [Suspect]
     Active Substance: IODIXANOL
     Indication: IMAGING PROCEDURE
     Dosage: 100 ML, SINGLE
     Route: 042
     Dates: start: 20190724, end: 20190724
  9. VISIPAQUE [Suspect]
     Active Substance: IODIXANOL
     Indication: PRODUCT USED FOR UNKNOWN INDICATION

REACTIONS (3)
  - Dyspnoea [Recovered/Resolved]
  - Dysphagia [Recovered/Resolved]
  - Cough [Recovered/Resolved]

NARRATIVE: CASE EVENT DATE: 20190724
